FAERS Safety Report 8507806-8 (Version None)
Quarter: 2012Q3

REPORT INFORMATION
  Report Type: 
  Country: None (occurrence: None)
  Receive Date: 20120713
  Receipt Date: 20120710
  Transmission Date: 20120928
  Serious: Yes (Other)
  Sender: FDA-Public Use
  Company Number: PHHY2012NL059243

PATIENT
  Sex: Male
  Weight: 80 kg

DRUGS (2)
  1. CLOZAPINE [Suspect]
     Indication: SCHIZOPHRENIA
     Dosage: 500 MG
     Dates: start: 20110101
  2. SINEMET 125 [Concomitant]
     Dosage: 1 DF (4 TIMES PER DAY 1 TABLET)
     Dates: start: 20110701

REACTIONS (3)
  - DIZZINESS [None]
  - ORTHOSTATIC HYPOTENSION [None]
  - FALL [None]
